FAERS Safety Report 20145792 (Version 1)
Quarter: 2021Q4

REPORT INFORMATION
  Report Type: Spontaneous
  Country: US (occurrence: None)
  Receive Date: 20211203
  Receipt Date: 20211203
  Transmission Date: 20220303
  Serious: Yes (Death, Hospitalization, Other)
  Sender: FDA-Public Use
  Company Number: None

PATIENT
  Age: 20 Year
  Sex: Female
  Weight: 61.2 kg

DRUGS (1)
  1. OCREVUS [Suspect]
     Active Substance: OCRELIZUMAB
     Indication: Multiple sclerosis
     Dates: start: 20191105, end: 20191105

REACTIONS (6)
  - Hepatic failure [None]
  - Hepatitis [None]
  - Hepatic necrosis [None]
  - Bronchopulmonary aspergillosis [None]
  - Disseminated aspergillosis [None]
  - Cerebral aspergillosis [None]

NARRATIVE: CASE EVENT DATE: 20191105
